FAERS Safety Report 6530021-4 (Version None)
Quarter: 2010Q1

REPORT INFORMATION
  Report Type: 
  Country: None (occurrence: None)
  Receive Date: 20100107
  Receipt Date: 20091229
  Transmission Date: 20100710
  Serious: Yes (Hospitalization)
  Sender: FDA-Public Use
  Company Number: US-ABBOTT-10P-163-0617251-00

PATIENT

DRUGS (3)
  1. HUMIRA [Suspect]
     Indication: SJOGREN'S SYNDROME
     Dates: start: 20091003, end: 20091024
  2. HUMIRA [Suspect]
     Indication: CONNECTIVE TISSUE DISORDER
  3. HUMIRA [Suspect]
     Indication: ARTHRITIS

REACTIONS (15)
  - ARTHRALGIA [None]
  - BILIARY DYSKINESIA [None]
  - CYSTITIS [None]
  - HEPATITIS ACUTE [None]
  - HYPOKALAEMIA [None]
  - IMPAIRED GASTRIC EMPTYING [None]
  - INFLUENZA [None]
  - JOINT STIFFNESS [None]
  - LEUKOCYTOSIS [None]
  - NAUSEA [None]
  - PNEUMONIA [None]
  - PYREXIA [None]
  - SINUSITIS [None]
  - SYNCOPE [None]
  - VOMITING [None]
